FAERS Safety Report 5267510-9 (Version None)
Quarter: 2007Q1

REPORT INFORMATION
  Report Type: 
  Country: None (occurrence: None)
  Receive Date: 20061213
  Receipt Date: 20031029
  Transmission Date: 20070707
  Serious: No
  Sender: FDA-Public Use
  Company Number: 2003UW14278

PATIENT
  Age: 65 Year
  Sex: Female
  Weight: 65.7716 kg

DRUGS (2)
  1. TAMOXIFEN [Suspect]
     Indication: BREAST CANCER
     Dates: start: 20030101, end: 20031027
  2. ZOMETA [Concomitant]

REACTIONS (1)
  - DISEASE PROGRESSION [None]
